FAERS Safety Report 20729621 (Version 1)
Quarter: 2022Q2

REPORT INFORMATION
  Report Type: Other
  Country: MY (occurrence: None)
  Receive Date: 20220420
  Receipt Date: 20220420
  Transmission Date: 20220720
  Serious: Yes (Hospitalization)
  Sender: FDA-Public Use
  Company Number: MY-ROCHE-3077347

PATIENT
  Age: 20 Year
  Sex: Male

DRUGS (1)
  1. RITUXIMAB [Suspect]
     Active Substance: RITUXIMAB
     Indication: Pemphigus
     Dosage: INTRAVENOUSLY GIVEN AS 2 INFUSIONS 15 DAYS APART
     Route: 041

REACTIONS (2)
  - Bacteraemia [Unknown]
  - Off label use [Unknown]
